FAERS Safety Report 15320757 (Version 1)
Quarter: 2018Q3

REPORT INFORMATION
  Report Type: Spontaneous
  Country: US (occurrence: US)
  Receive Date: 20180821
  Receipt Date: 20180821
  Transmission Date: 20181010
  Serious: No
  Sender: FDA-Public Use
  Company Number: None

PATIENT
  Age: 51 Year
  Sex: Female
  Weight: 76.5 kg

DRUGS (3)
  1. TIGER BALM [Suspect]
     Active Substance: CAMPHOR (SYNTHETIC)\CAPSICUM OLEORESIN\MENTHOL\METHYL SALICYLATE
     Indication: MUSCULOSKELETAL PAIN
     Route: 061
     Dates: start: 20180815, end: 20180819
  2. TIGER BALM [Suspect]
     Active Substance: CAMPHOR (SYNTHETIC)\CAPSICUM OLEORESIN\MENTHOL\METHYL SALICYLATE
     Indication: TENDON PAIN
     Route: 061
     Dates: start: 20180815, end: 20180819
  3. ADVIL [Concomitant]
     Active Substance: IBUPROFEN

REACTIONS (3)
  - Urticaria [None]
  - Pruritus [None]
  - Erythema [None]

NARRATIVE: CASE EVENT DATE: 20180819
